FAERS Safety Report 14391508 (Version 1)
Quarter: 2018Q1

REPORT INFORMATION
  Report Type: Spontaneous
  Country: BR (occurrence: BR)
  Receive Date: 20180116
  Receipt Date: 20180116
  Transmission Date: 20180509
  Serious: Yes (Hospitalization, Other)
  Sender: FDA-Public Use
  Company Number: PHHY2017BR196923

PATIENT
  Age: 1 Year
  Sex: Male
  Weight: 9.5 kg

DRUGS (5)
  1. GARDENAL [Concomitant]
     Active Substance: PHENOBARBITAL
     Indication: EPILEPSY
     Dosage: 25 DRP, QD
     Route: 048
     Dates: start: 201705
  2. AEROLIN [Concomitant]
     Active Substance: ALBUTEROL
     Indication: BRONCHIAL DYSPLASIA
     Dosage: UNK UNK, QD
     Route: 065
     Dates: start: 201610
  3. TEGRETOL [Suspect]
     Active Substance: CARBAMAZEPINE
     Indication: EPILEPSY
     Dosage: 7 ML, BID
     Route: 048
     Dates: start: 201705
  4. CLENIL [Concomitant]
     Active Substance: BECLOMETHASONE DIPROPIONATE
     Indication: BRONCHIAL DYSPLASIA
     Dosage: UNK UNK, BID
     Route: 055
     Dates: start: 201610
  5. CARBAMAZEPINE. [Suspect]
     Active Substance: CARBAMAZEPINE
     Indication: EPILEPSY
     Route: 065

REACTIONS (2)
  - Epilepsy [Unknown]
  - Drug ineffective [Unknown]

NARRATIVE: CASE EVENT DATE: 201711
